FAERS Safety Report 15619577 (Version 1)
Quarter: 2018Q4

REPORT INFORMATION
  Report Type: Spontaneous
  Country: IT (occurrence: IT)
  Receive Date: 20181115
  Receipt Date: 20181115
  Transmission Date: 20190205
  Serious: Yes (Hospitalization)
  Sender: FDA-Public Use
  Company Number: IT-ACCORD-092347

PATIENT
  Age: 9 Year
  Sex: Male
  Weight: 30 kg

DRUGS (3)
  1. PURINETHOL [Suspect]
     Active Substance: MERCAPTOPURINE
     Indication: LEUKAEMIA RECURRENT
     Route: 048
     Dates: start: 20180430, end: 20180504
  2. FOLIC ACID. [Concomitant]
     Active Substance: FOLIC ACID
     Route: 048
  3. METHOTREXATE. [Suspect]
     Active Substance: METHOTREXATE
     Indication: LEUKAEMIA RECURRENT
     Route: 048
     Dates: start: 20180430, end: 20180504

REACTIONS (2)
  - Bone marrow failure [Recovering/Resolving]
  - Hypertransaminasaemia [Recovering/Resolving]

NARRATIVE: CASE EVENT DATE: 20180504
